FAERS Safety Report 5050682-9 (Version None)
Quarter: 2006Q3

REPORT INFORMATION
  Report Type: 
  Country: None (occurrence: None)
  Receive Date: 20060707
  Receipt Date: 20060628
  Transmission Date: 20061208
  Serious: Yes (Hospitalization)
  Sender: FDA-Public Use
  Company Number: 6023733

PATIENT
  Age: 79 Year
  Sex: Female

DRUGS (6)
  1. LEVOTHYROX (TABLET) (LEVOTHYROXINE) [Suspect]
     Indication: HYPOTHYROIDISM
     Dosage: 150 MCG (150 MCG, 1 D) ORAL; 75 MCG (75 MCG, 1D)
     Route: 048
     Dates: start: 19890615, end: 20060517
  2. CYANOCOBALAMINE (CYANOCOBALAMIN) [Suspect]
     Dosage: 1 AMPULE EVERY 15 DAYS (2 IN 1 M)
     Route: 048
     Dates: start: 20010615
  3. PRACTAZIN (TABLET) (SPIRONOLACTONE, ALTIZIDE) [Suspect]
     Dosage: ORAL
     Route: 048
     Dates: end: 20060516
  4. ZOCOR [Suspect]
     Dosage: 20 MG (20 MG, 1D) ORAL
     Route: 048
  5. RIVOTRIL (ORAL SOLUTION) (CLONAZEPAM) [Suspect]
     Dosage: 20 DROPS/DAY (1D) ORAL
     Route: 048
     Dates: start: 19990615
  6. TIAPRIDAL (TABLET) (TIAPRIDE) [Suspect]
     Dosage: 100 MG (100 MG, 1 D) ORAL
     Route: 048
     Dates: end: 20060516

REACTIONS (2)
  - HYPOKALAEMIA [None]
  - HYPONATRAEMIA [None]
